FAERS Safety Report 18189391 (Version 35)
Quarter: 2025Q3

REPORT INFORMATION
  Report Type: Report from Study
  Country: US (occurrence: US)
  Receive Date: 20200824
  Receipt Date: 20250701
  Transmission Date: 20251021
  Serious: Yes (Other)
  Sender: TAKEDA
  Company Number: US-SHIRE-US202027309

PATIENT
  Age: 36 Year
  Sex: Female
  Weight: 145 kg

DRUGS (62)
  1. HUMAN IMMUNOGLOBULIN G [Suspect]
     Active Substance: HUMAN IMMUNOGLOBULIN G
     Indication: Polyneuropathy
     Dosage: 90 GRAM, Q3WEEKS
     Dates: start: 20190905
  2. HUMAN IMMUNOGLOBULIN G [Suspect]
     Active Substance: HUMAN IMMUNOGLOBULIN G
     Indication: Myopathy
     Dosage: 35 GRAM, Q4WEEKS
     Dates: start: 20191004
  3. HUMAN IMMUNOGLOBULIN G [Suspect]
     Active Substance: HUMAN IMMUNOGLOBULIN G
     Indication: Stiff person syndrome
     Dosage: 50 GRAM, Q3WEEKS
  4. HUMAN IMMUNOGLOBULIN G [Suspect]
     Active Substance: HUMAN IMMUNOGLOBULIN G
     Dosage: 50 GRAM, Q3WEEKS
  5. HUMAN IMMUNOGLOBULIN G [Suspect]
     Active Substance: HUMAN IMMUNOGLOBULIN G
     Dosage: 50 GRAM, Q3WEEKS
  6. HUMAN IMMUNOGLOBULIN G [Suspect]
     Active Substance: HUMAN IMMUNOGLOBULIN G
     Dosage: 50 GRAM, Q3WEEKS
  7. HUMAN IMMUNOGLOBULIN G [Suspect]
     Active Substance: HUMAN IMMUNOGLOBULIN G
     Dosage: 90 GRAM, Q3WEEKS
  8. CLARITIN [Concomitant]
     Active Substance: LORATADINE
  9. METHOCARBAMOL [Concomitant]
     Active Substance: METHOCARBAMOL
  10. ZYRTEC [Concomitant]
     Active Substance: CETIRIZINE HYDROCHLORIDE
     Indication: Product used for unknown indication
  11. PLAQUENIL [Concomitant]
     Active Substance: HYDROXYCHLOROQUINE SULFATE
  12. ATORVASTATIN CALCIUM [Concomitant]
     Active Substance: ATORVASTATIN CALCIUM
  13. ACETAMINOPHEN [Concomitant]
     Active Substance: ACETAMINOPHEN
  14. MYCOPHENOLATE MOFETIL [Concomitant]
     Active Substance: MYCOPHENOLATE MOFETIL
  15. KETOROLAC TROMETHAMINE [Concomitant]
     Active Substance: KETOROLAC TROMETHAMINE
  16. KLONOPIN [Concomitant]
     Active Substance: CLONAZEPAM
     Indication: Product used for unknown indication
  17. ACETAMINOPHEN\HYDROCODONE [Concomitant]
     Active Substance: ACETAMINOPHEN\HYDROCODONE
  18. SINGULAIR [Concomitant]
     Active Substance: MONTELUKAST SODIUM
  19. ALBUTEROL SULFATE [Concomitant]
     Active Substance: ALBUTEROL SULFATE
  20. AJOVY [Concomitant]
     Active Substance: FREMANEZUMAB-VFRM
  21. DIPHENHYDRAMINE [Concomitant]
     Active Substance: DIPHENHYDRAMINE
  22. KETOCONAZOLE [Concomitant]
     Active Substance: KETOCONAZOLE
  23. MAGNESIUM [Concomitant]
     Active Substance: MAGNESIUM
  24. TRAMADOL HCL [Concomitant]
     Active Substance: TRAMADOL HYDROCHLORIDE
  25. FLUCONAZOLE [Concomitant]
     Active Substance: FLUCONAZOLE
  26. IBUPROFEN [Concomitant]
     Active Substance: IBUPROFEN
  27. METHYLPREDNISOLONE [Concomitant]
     Active Substance: METHYLPREDNISOLONE
  28. AMITRIPTYLINE HYDROCHLORIDE [Concomitant]
     Active Substance: AMITRIPTYLINE HYDROCHLORIDE
  29. BOTOX [Concomitant]
     Active Substance: ONABOTULINUMTOXINA
     Indication: Product used for unknown indication
  30. VITAMIN D3 [Concomitant]
     Active Substance: CHOLECALCIFEROL
  31. ZOFRAN [Concomitant]
     Active Substance: ONDANSETRON HYDROCHLORIDE
  32. ASPIRIN [Concomitant]
     Active Substance: ASPIRIN
  33. BUDESONIDE [Concomitant]
     Active Substance: BUDESONIDE
  34. PREDNISONE [Concomitant]
     Active Substance: PREDNISONE
  35. NYSTATIN [Concomitant]
     Active Substance: NYSTATIN
  36. DANTROLENE SODIUM [Concomitant]
     Active Substance: DANTROLENE SODIUM
  37. ACETAZOLAMIDE [Concomitant]
     Active Substance: ACETAZOLAMIDE
  38. PROAIR HFA [Concomitant]
     Active Substance: ALBUTEROL SULFATE
  39. EPINEPHRINE [Concomitant]
     Active Substance: EPINEPHRINE
  40. SODIUM CHLORIDE [Concomitant]
     Active Substance: SODIUM CHLORIDE
  41. FLONASE [Concomitant]
     Active Substance: FLUTICASONE PROPIONATE
  42. WELLBUTRIN XL [Concomitant]
     Active Substance: BUPROPION HYDROCHLORIDE
  43. HYDROCHLOROTHIAZIDE\TRIAMTERENE [Concomitant]
     Active Substance: HYDROCHLOROTHIAZIDE\TRIAMTERENE
     Indication: Product used for unknown indication
  44. FLUTICASONE [Concomitant]
     Active Substance: FLUTICASONE
  45. CREATINE [Concomitant]
     Active Substance: CREATINE
  46. TROMETHAMINE [Concomitant]
     Active Substance: TROMETHAMINE
  47. CELEBREX [Concomitant]
     Active Substance: CELECOXIB
  48. METHENAMINE MANDELATE [Concomitant]
     Active Substance: METHENAMINE MANDELATE
  49. COENZYME Q10 [Concomitant]
     Active Substance: DIETARY SUPPLEMENT\UBIDECARENONE
  50. CANNABIDIOL\HERBALS [Concomitant]
     Active Substance: CANNABIDIOL\HERBALS
  51. CARNITINE [Concomitant]
     Active Substance: CARNITINE
  52. TOPAMAX [Concomitant]
     Active Substance: TOPIRAMATE
  53. TAMIFLU [Concomitant]
     Active Substance: OSELTAMIVIR PHOSPHATE
  54. CEFDINIR [Concomitant]
     Active Substance: CEFDINIR
  55. DIPHENHYDRAMINE HYDROCHLORIDE [Concomitant]
     Active Substance: DIPHENHYDRAMINE HYDROCHLORIDE
  56. LEVOTHYROXINE SODIUM [Concomitant]
     Active Substance: LEVOTHYROXINE SODIUM
  57. ADDERALL [Concomitant]
     Active Substance: AMPHETAMINE ASPARTATE\AMPHETAMINE SULFATE\DEXTROAMPHETAMINE SACCHARATE\DEXTROAMPHETAMINE SULFATE
  58. NUCALA [Concomitant]
     Active Substance: MEPOLIZUMAB
  59. RESTASIS [Concomitant]
     Active Substance: CYCLOSPORINE
  60. PANTOPRAZOLE SODIUM [Concomitant]
     Active Substance: PANTOPRAZOLE SODIUM
  61. LEFLUNOMIDE [Concomitant]
     Active Substance: LEFLUNOMIDE
  62. MYRBETRIQ [Concomitant]
     Active Substance: MIRABEGRON

REACTIONS (39)
  - Pneumonia bacterial [Unknown]
  - Idiopathic intracranial hypertension [Unknown]
  - Intracranial pressure increased [Unknown]
  - Sepsis [Unknown]
  - Post procedural stroke [Recovering/Resolving]
  - Pneumonia [Unknown]
  - Embolism arterial [Unknown]
  - Cerebrovascular accident [Unknown]
  - Arteriovenous malformation [Unknown]
  - Pyrexia [Unknown]
  - Bronchitis bacterial [Unknown]
  - Haemoptysis [Unknown]
  - Ear infection [Unknown]
  - Food poisoning [Unknown]
  - Bronchitis [Unknown]
  - Laryngitis [Unknown]
  - Breast mass [Unknown]
  - Viral infection [Recovered/Resolved]
  - COVID-19 [Unknown]
  - Infection [Unknown]
  - Poor venous access [Unknown]
  - Product dose omission issue [Unknown]
  - Off label use [Unknown]
  - Infusion related reaction [Unknown]
  - Cellulitis [Unknown]
  - Respiratory tract infection [Unknown]
  - Injury corneal [Unknown]
  - Upper respiratory tract infection [Unknown]
  - Sinusitis [Not Recovered/Not Resolved]
  - Influenza [Unknown]
  - Feeling abnormal [Unknown]
  - Asthma [Unknown]
  - Vision blurred [Unknown]
  - Infusion site extravasation [Unknown]
  - Rash erythematous [Unknown]
  - Pain [Unknown]
  - Blood pressure increased [Unknown]
  - Malaise [Unknown]
  - Headache [Unknown]

NARRATIVE: CASE EVENT DATE: 20190905
